FAERS Safety Report 17473658 (Version 1)
Quarter: 2020Q1

REPORT INFORMATION
  Report Type: Spontaneous
  Country: US (occurrence: US)
  Receive Date: 20200228
  Receipt Date: 20200228
  Transmission Date: 20200409
  Serious: No
  Sender: FDA-Public Use
  Company Number: US-RECORDATI RARE DISEASES-2081073

PATIENT
  Sex: Female

DRUGS (1)
  1. CYSTADANE [Suspect]
     Active Substance: BETAINE
     Indication: PRODUCT USED FOR UNKNOWN INDICATION

REACTIONS (1)
  - Eczema [Recovering/Resolving]

NARRATIVE: CASE EVENT DATE: 2019
